FAERS Safety Report 16772265 (Version 1)
Quarter: 2019Q4

REPORT INFORMATION
  Report Type: Spontaneous
  Country: US (occurrence: US)
  Receive Date: 20190904
  Receipt Date: 20190904
  Transmission Date: 20200122
  Serious: Yes (Other)
  Sender: FDA-Public Use
  Company Number: None

PATIENT
  Age: 57 Year
  Sex: Female
  Weight: 85.05 kg

DRUGS (17)
  1. NITROGLYCERIN PATCH [Concomitant]
     Active Substance: NITROGLYCERIN
  2. BYSTOLIC [Concomitant]
     Active Substance: NEBIVOLOL HYDROCHLORIDE
  3. IMODIUM [Concomitant]
     Active Substance: LOPERAMIDE HYDROCHLORIDE
  4. PEPTO-BISMOL [Concomitant]
     Active Substance: BISMUTH SUBSALICYLATE
  5. ENTRESTO [Suspect]
     Active Substance: SACUBITRIL\VALSARTAN
     Indication: CARDIAC FAILURE
     Dosage: ?          QUANTITY:60 TABLET(S);?
     Route: 048
  6. LIDOCAINE AND PRILOCAINE CREAM [Concomitant]
     Active Substance: LIDOCAINE\PRILOCAINE
  7. DIGESTIVE ADVANTAGE PROBIOTIC [Concomitant]
  8. ASPRIN [Concomitant]
     Active Substance: ASPIRIN
  9. HUMALOG [Concomitant]
     Active Substance: INSULIN LISPRO
  10. CLONIDINE PATCH [Concomitant]
     Active Substance: CLONIDINE
  11. COZAAR [Concomitant]
     Active Substance: LOSARTAN POTASSIUM
  12. ZOFRAN [Concomitant]
     Active Substance: ONDANSETRON HYDROCHLORIDE
  13. INSULIN [Concomitant]
     Active Substance: INSULIN NOS
  14. LORAZEPAM. [Concomitant]
     Active Substance: LORAZEPAM
  15. NITROGLYCERIN. [Concomitant]
     Active Substance: NITROGLYCERIN
  16. TYLENOL EXTRA STRENGTH [Concomitant]
     Active Substance: ACETAMINOPHEN
  17. BUMETANIDE. [Concomitant]
     Active Substance: BUMETANIDE

REACTIONS (1)
  - Renal impairment [None]

NARRATIVE: CASE EVENT DATE: 20190405
